FAERS Safety Report 23948131 (Version 1)
Quarter: 2024Q2

REPORT INFORMATION
  Report Type: Other
  Country: IN (occurrence: IN)
  Receive Date: 20240607
  Receipt Date: 20240607
  Transmission Date: 20240716
  Serious: Yes (Hospitalization, Other)
  Sender: FDA-Public Use
  Company Number: IN-Bion-013207

PATIENT
  Age: 44 Year
  Sex: Male

DRUGS (4)
  1. AMANTADINE HYDROCHLORIDE [Suspect]
     Active Substance: AMANTADINE HYDROCHLORIDE
     Indication: Parkinson^s disease
     Dosage: 300 MG/DAY
  2. PRAMIPEXOLE [Concomitant]
     Active Substance: PRAMIPEXOLE\PRAMIPEXOLE DIHYDROCHLORIDE
     Indication: Parkinson^s disease
     Dosage: 6.3 MG/DAY TABLET
  3. CARBIDOPA\LEVODOPA [Concomitant]
     Active Substance: CARBIDOPA\LEVODOPA
     Indication: Parkinson^s disease
  4. SAFINAMIDE [Concomitant]
     Active Substance: SAFINAMIDE
     Indication: Parkinson^s disease

REACTIONS (1)
  - Inappropriate antidiuretic hormone secretion [Recovering/Resolving]
